FAERS Safety Report 4563691-0 (Version None)
Quarter: 2005Q1

REPORT INFORMATION
  Report Type: 
  Country: None (occurrence: None)
  Receive Date: 20050124
  Receipt Date: 20050112
  Transmission Date: 20050727
  Serious: Yes (Hospitalization)
  Sender: FDA-Public Use
  Company Number: MK200501-0123-1

PATIENT
  Sex: Male

DRUGS (2)
  1. ANAFRANIL [Suspect]
  2. WELLBUTRIN [Suspect]

REACTIONS (2)
  - BRONCHIOLITIS [None]
  - DRUG INTERACTION [None]
